FAERS Safety Report 24222578 (Version 1)
Quarter: 2024Q3

REPORT INFORMATION
  Report Type: Spontaneous
  Country: US (occurrence: US)
  Receive Date: 20240819
  Receipt Date: 20240819
  Transmission Date: 20241017
  Serious: No
  Sender: Tarsus Pharmaceuticals
  Company Number: US-TARSUS PHARMACEUTICALS-TSP-US-2024-000269

PATIENT

DRUGS (3)
  1. XDEMVY [Suspect]
     Active Substance: LOTILANER
     Indication: Demodex blepharitis
     Dosage: 1 DROP, BID (BOTH EYE)
     Route: 047
  2. IVERMECTIN [Concomitant]
     Active Substance: IVERMECTIN
     Indication: Demodex blepharitis
     Dosage: UNK
  3. IVERMECTIN [Concomitant]
     Active Substance: IVERMECTIN
     Indication: Demodex blepharitis

REACTIONS (1)
  - Therapeutic response decreased [Unknown]
